FAERS Safety Report 5963159-0 (Version None)
Quarter: 2008Q4

REPORT INFORMATION
  Report Type: 
  Country: None (occurrence: None)
  Receive Date: 20081119
  Receipt Date: 20080801
  Transmission Date: 20090506
  Serious: No
  Sender: FDA-Public Use
  Company Number: WAES 0808USA00213

PATIENT
  Age: 31 Year
  Sex: Female

DRUGS (7)
  1. JANUVIA [Suspect]
     Indication: DIABETES MELLITUS
     Dosage: 100 MG/DAILY/PO ; PO
     Route: 048
     Dates: start: 20080730
  2. JANUVIA [Suspect]
     Indication: DIABETES MELLITUS
     Dosage: 100 MG/DAILY/PO ; PO
     Route: 048
     Dates: start: 20080801
  3. GLIMEPIRIDE [Concomitant]
  4. LISINOPRIL [Concomitant]
  5. LOVASTATIN [Concomitant]
  6. METFORMIN HCL [Concomitant]
  7. RANITIDINE [Concomitant]

REACTIONS (4)
  - ASTHENIA [None]
  - BLOOD GLUCOSE DECREASED [None]
  - HEADACHE [None]
  - WRONG TECHNIQUE IN DRUG USAGE PROCESS [None]
